FAERS Safety Report 19784544 (Version 1)
Quarter: 2021Q3

REPORT INFORMATION
  Report Type: Spontaneous
  Country: US (occurrence: US)
  Receive Date: 20210903
  Receipt Date: 20210903
  Transmission Date: 20211014
  Serious: No
  Sender: FDA-Public Use
  Company Number: US-SA-2021SA289706

PATIENT
  Sex: Female

DRUGS (13)
  1. OMEGA 3?6?9 [FISH OIL] [Concomitant]
     Active Substance: FISH OIL
  2. VITAMIN E [Concomitant]
     Active Substance: .ALPHA.-TOCOPHEROL
  3. ZINC. [Concomitant]
     Active Substance: ZINC
  4. IVERMECTIN. [Concomitant]
     Active Substance: IVERMECTIN
  5. NAC [ACETYLCYSTEINE] [Concomitant]
     Active Substance: ACETYLCYSTEINE
  6. VITAMIN B COMPLEX [Concomitant]
     Active Substance: CYANOCOBALAMIN\DEXPANTHENOL\NIACINAMIDE\PYRIDOXINE HYDROCHLORIDE\RIBOFLAVIN 5^-PHOSPHATE SODIUM\THIAMINE HYDROCHLORIDE\VITAMIN B COMPLEX
  7. CURCUMIN [Concomitant]
     Active Substance: CURCUMIN
  8. VITAMIN D [VITAMIN D NOS] [Concomitant]
     Active Substance: VITAMIN D NOS
  9. SELENIUM [Concomitant]
     Active Substance: SELENIUM
  10. AUBAGIO [Suspect]
     Active Substance: TERIFLUNOMIDE
     Indication: MULTIPLE SCLEROSIS
     Dosage: 14 MG, QD
     Route: 048
  11. VITAMIN C [Concomitant]
     Active Substance: ASCORBIC ACID
  12. GINSENG [PANAX GINSENG] [Concomitant]
  13. TURMERIC [CURCUMA LONGA] [Concomitant]
     Active Substance: HERBALS\TURMERIC

REACTIONS (1)
  - Hypoaesthesia [Unknown]
